FAERS Safety Report 6933712-6 (Version None)
Quarter: 2010Q3

REPORT INFORMATION
  Report Type: 
  Country: None (occurrence: None)
  Receive Date: 20100820
  Receipt Date: 20100809
  Transmission Date: 20110219
  Serious: Yes (Other)
  Sender: FDA-Public Use
  Company Number: CA-JNJFOC-20100803405

PATIENT
  Age: 70 Year

DRUGS (1)
  1. REMICADE [Suspect]
     Indication: PRODUCT USED FOR UNKNOWN INDICATION
     Route: 042

REACTIONS (4)
  - BLOOD CHOLESTEROL INCREASED [None]
  - CHOLESTEATOMA [None]
  - RHEUMATOID ARTHRITIS [None]
  - TYMPANIC MEMBRANE PERFORATION [None]
